FAERS Safety Report 8121655 (Version 2)
Quarter: 2012Q4

REPORT INFORMATION
  Report Type: Report from Study
  Country: NL (occurrence: NL)
  Receive Date: 20110906
  Receipt Date: 20121026
  Transmission Date: 20130627
  Serious: Yes (Hospitalization)
  Sender: FDA-Public Use
  Company Number: NL-GLAXOSMITHKLINE-B0744718A

PATIENT
  Age: 60 Year
  Sex: Female
  Weight: 67 kg

DRUGS (2)
  1. TYVERB [Suspect]
     Indication: CERVIX CARCINOMA RECURRENT
     Route: 065
     Dates: start: 20110802
  2. CISPLATIN [Suspect]
     Indication: CERVIX CARCINOMA RECURRENT
     Dosage: 120MG Weekly
     Route: 042
     Dates: start: 20110802

REACTIONS (1)
  - Renal failure [Not Recovered/Not Resolved]
